FAERS Safety Report 7082077-0 (Version None)
Quarter: 2010Q4

REPORT INFORMATION
  Report Type: 
  Country: None (occurrence: None)
  Receive Date: 20101103
  Receipt Date: 20101026
  Transmission Date: 20110411
  Serious: Yes (Other)
  Sender: FDA-Public Use
  Company Number: US-PFIZER INC-2010125178

PATIENT
  Sex: Male
  Weight: 72.6 kg

DRUGS (11)
  1. AZITHROMYCIN [Suspect]
     Dosage: 250 MG, 1X/DAY
     Route: 048
     Dates: start: 20100928
  2. SIMVASTATIN [Concomitant]
     Indication: CARDIAC DISORDER
     Dosage: 80 MG, 1X/DAY
  3. RANITIDINE [Concomitant]
     Indication: COLITIS ULCERATIVE
     Dosage: 300 MG, 1X/DAY
  4. ISOSORBIDE MONONITRATE [Concomitant]
     Indication: CARDIAC DISORDER
     Dosage: 120 MG, 1X/DAY
  5. ATENOLOL [Concomitant]
     Indication: CARDIAC DISORDER
     Dosage: 50 MG, 1X/DAY
  6. HYDROCHLOROTHIAZIDE [Concomitant]
     Indication: CARDIAC DISORDER
     Dosage: 12.5 MG, 1X/DAY
  7. ASACOL [Concomitant]
     Indication: COLITIS ULCERATIVE
     Dosage: 400 MG, 2X/DAY
  8. ALPRAZOLAM [Concomitant]
     Indication: ANXIETY
     Dosage: 0.5 MG, 1X/DAY
  9. ACETAMINOPHEN [Concomitant]
     Dosage: UNK MG, 2X/DAY
  10. NEURONTIN [Concomitant]
     Indication: BACK DISORDER
     Dosage: 100 MG, 1X/DAY
  11. ACETYLSALICYLIC ACID [Concomitant]
     Dosage: 325 MG, 2X/DAY
     Route: 048

REACTIONS (3)
  - ANXIETY [None]
  - FEELING ABNORMAL [None]
  - VERTIGO [None]
